FAERS Safety Report 5383411-X (Version None)
Quarter: 2007Q3

REPORT INFORMATION
  Report Type: 
  Country: None (occurrence: None)
  Receive Date: 20070710
  Receipt Date: 20070628
  Transmission Date: 20080115
  Serious: Yes (Life-Threatening)
  Sender: FDA-Public Use
  Company Number: FR-PFIZER INC-2007054569

PATIENT
  Age: 65 Year
  Sex: Male
  Weight: 64 kg

DRUGS (13)
  1. NEURONTIN [Suspect]
  2. RIVOTRIL [Suspect]
  3. THERALENE [Suspect]
     Route: 048
  4. SKENAN [Suspect]
  5. NOCTRAN 10 [Suspect]
     Route: 048
  6. CINACALCET [Concomitant]
     Route: 048
  7. ATENOLOL [Concomitant]
     Route: 048
  8. CLOPIDOGREL [Concomitant]
  9. ASPIRIN [Concomitant]
  10. ALVERINE CITRATE/SIMETICONE [Concomitant]
  11. PARACETAMOL [Concomitant]
  12. ESOMEPRAZOLE MAGNESIUM [Concomitant]
  13. TRIMETAZIDINE [Concomitant]

REACTIONS (6)
  - COMA [None]
  - ENCEPHALOPATHY [None]
  - HYPOTENSION [None]
  - HYPOXIA [None]
  - STATUS EPILEPTICUS [None]
  - STUPOR [None]
